FAERS Safety Report 22359694 (Version 1)
Quarter: 2023Q2

REPORT INFORMATION
  Report Type: Spontaneous
  Country: CA (occurrence: CA)
  Receive Date: 20230524
  Receipt Date: 20230524
  Transmission Date: 20230721
  Serious: Yes (Life-Threatening, Other)
  Sender: FDA-Public Use
  Company Number: CA-BAXTER-2023BAX021999

PATIENT
  Age: 52 Year
  Sex: Female

DRUGS (1)
  1. SODIUM CHLORIDE [Suspect]
     Active Substance: SODIUM CHLORIDE
     Dosage: AT AN UNSPECIFIED DOSE AND FREQUENCY, DOSAGE FORM: MOUTHWASH
     Route: 065

REACTIONS (2)
  - Oedema [Recovered/Resolved]
  - Product preparation issue [Recovered/Resolved]
